FAERS Safety Report 16375735 (Version 1)
Quarter: 2019Q2

REPORT INFORMATION
  Report Type: Report from Study
  Country: None (occurrence: GB)
  Receive Date: 20190531
  Receipt Date: 20190531
  Transmission Date: 20190711
  Serious: Yes (Hospitalization, Other)
  Sender: FDA-Public Use
  Company Number: GB-ABBVIE-19K-167-2803313-00

PATIENT
  Age: 61 Year
  Sex: Male
  Weight: 82.9 kg

DRUGS (5)
  1. BENEPALI [Concomitant]
     Active Substance: ETANERCEPT
     Dates: start: 20190115
  2. HUMIRA [Suspect]
     Active Substance: ADALIMUMAB
     Indication: PSORIASIS
     Route: 058
     Dates: start: 20111110, end: 20180915
  3. HUMIRA [Suspect]
     Active Substance: ADALIMUMAB
     Route: 058
     Dates: start: 20190115, end: 20190509
  4. ATORVASTATIN [Concomitant]
     Active Substance: ATORVASTATIN
     Indication: PRODUCT USED FOR UNKNOWN INDICATION
     Dates: start: 20130610
  5. BENEPALI [Concomitant]
     Active Substance: ETANERCEPT
     Indication: PRODUCT USED FOR UNKNOWN INDICATION
     Dates: end: 20180915

REACTIONS (2)
  - Headache [Recovered/Resolved]
  - Haemangioblastoma [Recovered/Resolved]

NARRATIVE: CASE EVENT DATE: 20180815
